FAERS Safety Report 9467324 (Version 1)
Quarter: 2013Q3

REPORT INFORMATION
  Report Type: Spontaneous
  Country: US (occurrence: US)
  Receive Date: 20130821
  Receipt Date: 20130821
  Transmission Date: 20140515
  Serious: Yes (Death, Other)
  Sender: FDA-Public Use
  Company Number: US-PFIZER INC-2013236808

PATIENT
  Age: 68 Year
  Sex: Female

DRUGS (2)
  1. METHYLPREDNISOLONE ACETATE [Suspect]
     Dosage: 40 MG, UNK
  2. MARCAINE WITH EPINEPHRINE [Suspect]
     Indication: CERVICOGENIC HEADACHE
     Dosage: 4 CC OF 0.25% MARCAINE, 1:200,000 EPINEPHRINE

REACTIONS (4)
  - Brain death [Fatal]
  - Encephalitis [Fatal]
  - Hydrocephalus [Not Recovered/Not Resolved]
  - Quadriplegia [Unknown]
